FAERS Safety Report 16195681 (Version 2)
Quarter: 2019Q2

REPORT INFORMATION
  Report Type: Spontaneous
  Country: AU (occurrence: AU)
  Receive Date: 20190415
  Receipt Date: 20190604
  Transmission Date: 20190711
  Serious: Yes (Other)
  Sender: FDA-Public Use
  Company Number: AU-009507513-1904AUS005376

PATIENT
  Age: 65 Year
  Sex: Male

DRUGS (2)
  1. PEMBROLIZUMAB. [Suspect]
     Active Substance: PEMBROLIZUMAB
     Indication: NON-SMALL CELL LUNG CANCER STAGE IV
  2. PEMBROLIZUMAB. [Suspect]
     Active Substance: PEMBROLIZUMAB
     Indication: SQUAMOUS CELL CARCINOMA
     Dosage: 200 MILLIGRAM, Q3W(3 WEEKLY)
     Dates: start: 20190225

REACTIONS (3)
  - Facial paralysis [Recovered/Resolved]
  - Aphasia [Recovered/Resolved]
  - Brain oedema [Recovered/Resolved]

NARRATIVE: CASE EVENT DATE: 20190305
